FAERS Safety Report 10095978 (Version 1)
Quarter: 2014Q2

REPORT INFORMATION
  Report Type: Report from Study
  Country: US (occurrence: US)
  Receive Date: 20140422
  Receipt Date: 20140422
  Transmission Date: 20141212
  Serious: Yes (Hospitalization)
  Sender: FDA-Public Use
  Company Number: US-GLAXOSMITHKLINE-A1059302B

PATIENT
  Age: 79 Year
  Sex: Male
  Weight: 62.7 kg

DRUGS (12)
  1. DABRAFENIB [Suspect]
     Indication: PAPILLARY THYROID CANCER
     Dosage: 75MG TWICE PER DAY
     Route: 048
     Dates: start: 20131204
  2. TRAMETINIB [Suspect]
     Indication: PAPILLARY THYROID CANCER
     Dosage: 2MG PER DAY
     Route: 048
     Dates: start: 20131204
  3. PRADAXA [Suspect]
     Indication: ATRIAL FIBRILLATION
     Dates: start: 20140212, end: 20140304
  4. COMPAZINE [Concomitant]
     Dates: start: 20131217
  5. DILTIAZEM [Concomitant]
     Dates: start: 20140212
  6. FLOMAX [Concomitant]
     Dates: start: 20130731
  7. FORTAMET [Concomitant]
     Dates: start: 20110725
  8. LANTUS [Concomitant]
     Dates: start: 20110725
  9. NOVOLOG [Concomitant]
     Dates: start: 20130731
  10. SIMVASTATIN [Concomitant]
     Dates: start: 20140212
  11. SYNTHROID [Concomitant]
     Dates: start: 20130725
  12. ZOFRAN [Concomitant]
     Dates: start: 20131223

REACTIONS (1)
  - Large intestinal haemorrhage [Unknown]
